FAERS Safety Report 4621327-4 (Version None)
Quarter: 2005Q1

REPORT INFORMATION
  Report Type: 
  Country: None (occurrence: None)
  Receive Date: 20050323
  Receipt Date: 20050323
  Transmission Date: 20050727
  Serious: Yes (Hospitalization)
  Sender: FDA-Public Use
  Company Number: None

PATIENT
  Age: 64 Year
  Sex: Male
  Weight: 77.5651 kg

DRUGS (5)
  1. OXALIPLATIN EVERY 3 WKS IV [Suspect]
     Indication: BLOOD CHOLESTEROL
     Dosage: 130 MG/M2
     Dates: start: 20050124, end: 20050222
  2. DOCETAXEL 2 OUT OF 3 WKS IV [Suspect]
     Dosage: 30 MG/M2
     Dates: start: 20050124, end: 20050222
  3. MORPHINE [Concomitant]
  4. CELEBREX [Concomitant]
  5. DECADRON [Concomitant]

REACTIONS (3)
  - BLOOD BILIRUBIN INCREASED [None]
  - BLOOD CREATINE INCREASED [None]
  - HYPERCALCAEMIA [None]
